FAERS Safety Report 7664508-8 (Version None)
Quarter: 2011Q3

REPORT INFORMATION
  Report Type: 
  Country: None (occurrence: None)
  Receive Date: 20110806
  Receipt Date: 20110321
  Transmission Date: 20111222
  Serious: No
  Sender: FDA-Public Use
  Company Number: US-ABBOTT-11P-163-0706714-00

PATIENT
  Sex: Male
  Weight: 92.162 kg

DRUGS (7)
  1. NIASPAN [Suspect]
     Indication: BLOOD CHOLESTEROL INCREASED
     Dates: start: 20110207
  2. WARFIN [Concomitant]
     Indication: CARDIAC VALVE DISEASE
  3. AVODART [Suspect]
     Indication: URINARY TRACT DISORDER
  4. LORAZEPAM [Concomitant]
     Indication: ANXIETY
  5. LOSARTAN POTASSIUM [Concomitant]
     Indication: RENAL DISORDER
  6. ACTOS [Concomitant]
     Indication: DIABETES MELLITUS
  7. LOSARTAN POTASSIUM [Concomitant]
     Indication: BLOOD PRESSURE

REACTIONS (2)
  - ABDOMINAL DISTENSION [None]
  - ABDOMINAL DISCOMFORT [None]
